FAERS Safety Report 5307605-4 (Version None)
Quarter: 2007Q2

REPORT INFORMATION
  Report Type: 
  Country: None (occurrence: None)
  Receive Date: 20070425
  Receipt Date: 20070413
  Transmission Date: 20071010
  Serious: Yes (Other)
  Sender: FDA-Public Use
  Company Number: US-PFIZER INC-2007030339

PATIENT
  Sex: Male
  Weight: 90.7 kg

DRUGS (7)
  1. CHANTIX [Suspect]
     Indication: EX-SMOKER
     Dates: start: 20070203
  2. CELEBREX [Suspect]
     Indication: ARTHROPATHY
  3. VIOXX [Suspect]
  4. VITAMINS [Concomitant]
  5. GLUCOSAMINE [Concomitant]
  6. TYLENOL [Concomitant]
  7. IBUPROFEN [Concomitant]

REACTIONS (11)
  - DYSGEUSIA [None]
  - ENDOSCOPY GASTROINTESTINAL [None]
  - ERUCTATION [None]
  - FLATULENCE [None]
  - FURUNCLE [None]
  - INFLUENZA [None]
  - LETHARGY [None]
  - NAUSEA [None]
  - STAPHYLOCOCCAL INFECTION [None]
  - URTICARIA [None]
  - VOMITING [None]
